FAERS Safety Report 18312040 (Version 1)
Quarter: 2020Q3

REPORT INFORMATION
  Report Type: Spontaneous
  Country: US (occurrence: US)
  Receive Date: 20200924
  Receipt Date: 20200924
  Transmission Date: 20201103
  Serious: Yes (Hospitalization)
  Sender: FDA-Public Use
  Company Number: None

PATIENT
  Age: 66 Year
  Sex: Male
  Weight: 122 kg

DRUGS (1)
  1. CARBOXYMETHYLCELLULOSE SODIUM (CARBOXYMETHYCLELLULOSE SODIUM CREAM, [Suspect]
     Active Substance: CARBOXYMETHYLCELLULOSE SODIUM
     Dosage: ?          OTHER DOSE:UNITS;OTHER FREQUENCY:PRN;?
     Route: 061
     Dates: start: 20200812, end: 20200813

REACTIONS (12)
  - Diarrhoea [None]
  - Dyspnoea [None]
  - Sepsis [None]
  - Pruritus [None]
  - Rash [None]
  - Lip swelling [None]
  - Urticaria [None]
  - Dizziness [None]
  - Hypotension [None]
  - Hyperhidrosis [None]
  - Anaphylactic reaction [None]
  - Myalgia [None]

NARRATIVE: CASE EVENT DATE: 20200813
